FAERS Safety Report 9353051 (Version 1)
Quarter: 2013Q2

REPORT INFORMATION
  Report Type: Spontaneous
  Country: US (occurrence: None)
  Receive Date: 20130612
  Receipt Date: 20130612
  Transmission Date: 20140414
  Serious: Yes (Death)
  Sender: FDA-Public Use
  Company Number: JPI-P-032748

PATIENT
  Age: 55 Year
  Sex: Male

DRUGS (1)
  1. XYREM [Suspect]
     Indication: NARCOLEPSY
     Route: 048
     Dates: start: 20080109, end: 20080217

REACTIONS (8)
  - Road traffic accident [None]
  - Amnesia [None]
  - Insomnia [None]
  - Irritability [None]
  - Mood altered [None]
  - Fall [None]
  - Contusion [None]
  - Adverse event [None]
